FAERS Safety Report 20460577 (Version 1)
Quarter: 2022Q1

REPORT INFORMATION
  Report Type: Report from Study
  Country: US (occurrence: US)
  Receive Date: 20220211
  Receipt Date: 20220211
  Transmission Date: 20220424
  Serious: Yes (Hospitalization)
  Sender: FDA-Public Use
  Company Number: US-JAZZ-2021-US-013766

PATIENT
  Age: 12 Year
  Sex: Male
  Weight: 42.3 kg

DRUGS (10)
  1. ASPARAGINASE ERWINIA CHRYSANTHEMI [Suspect]
     Active Substance: ASPARAGINASE ERWINIA CHRYSANTHEMI
     Indication: Acute lymphocytic leukaemia
     Dosage: 25 MILLIGRAM/SQ. METER, 3XWEEKLY PER 2W COURSE
     Route: 042
     Dates: start: 20210419, end: 20210430
  2. ASPARAGINASE ERWINIA CHRYSANTHEMI [Suspect]
     Active Substance: ASPARAGINASE ERWINIA CHRYSANTHEMI
     Dosage: 25 MILLIGRAM/SQ. METER, 3XWEEKLY PER 2W COURSE
     Route: 042
     Dates: end: 20210719
  3. DAPSONE [Concomitant]
     Active Substance: DAPSONE
     Dosage: 75 MILLIGRAM, PRN QD ON MWF
     Route: 048
     Dates: start: 20210714
  4. DEXAMETHASONE [Concomitant]
     Active Substance: DEXAMETHASONE
     Dosage: 8MG IN AM, 6MG IN PM IN EVENINGS X 7 DAYS
     Dates: start: 20210713, end: 20210722
  5. DRONABINOL [Concomitant]
     Active Substance: DRONABINOL
     Dosage: 2.5 MILLIGRAM, BID
     Route: 048
     Dates: start: 20210528
  6. FAMOTIDINE [Concomitant]
     Active Substance: FAMOTIDINE
     Dosage: 20 MILLIGRAM, BID
     Route: 048
     Dates: start: 20210223
  7. LIDOCAINE PRILOCAINE BIOGARAN [Concomitant]
     Dosage: APPLY TOPICALLY PRIOR TO PORT-A-CATH ACCESS
     Route: 061
     Dates: start: 20210618
  8. ONDANSETRON [Concomitant]
     Active Substance: ONDANSETRON
     Dosage: 8 MILLIGRAM Q6 BY TRANSLINGUAL
     Dates: start: 20210223
  9. PEDIASURE [NUTRIENTS NOS] [Concomitant]
     Dosage: 1 DOSAGE FORM (BOTTLE), BID
     Dates: start: 20210618
  10. DOCUSATE SODIUM\SENNOSIDE A\SENNOSIDE B [Concomitant]
     Active Substance: DOCUSATE SODIUM\SENNOSIDE A\SENNOSIDE B
     Dosage: 1 DOSAGE FORM (TABLET), BID
     Route: 048
     Dates: start: 20210528

REACTIONS (1)
  - Hyperglycaemia [Recovered/Resolved]

NARRATIVE: CASE EVENT DATE: 20210721
